FAERS Safety Report 7454254-8 (Version None)
Quarter: 2011Q2

REPORT INFORMATION
  Report Type: 
  Country: None (occurrence: None)
  Receive Date: 20110503
  Receipt Date: 20110304
  Transmission Date: 20111010
  Serious: Yes (Hospitalization)
  Sender: FDA-Public Use
  Company Number: DE-JNJFOC-20100807079

PATIENT
  Age: 36 Year
  Sex: Male
  Weight: 80 kg

DRUGS (1)
  1. INFLIXIMAB, RECOMBINANT [Suspect]
     Indication: COLITIS ULCERATIVE
     Route: 042

REACTIONS (7)
  - COLITIS ULCERATIVE [None]
  - CANDIDIASIS [None]
  - PSEUDOMONAS INFECTION [None]
  - ENTEROCOCCAL INFECTION [None]
  - BACTERAEMIA [None]
  - STAPHYLOCOCCAL BACTERAEMIA [None]
  - ANAL ABSCESS [None]
